FAERS Safety Report 13546249 (Version 1)
Quarter: 2017Q2

REPORT INFORMATION
  Report Type: Spontaneous
  Country: US (occurrence: US)
  Receive Date: 20170515
  Receipt Date: 20170515
  Transmission Date: 20170830
  Serious: No
  Sender: FDA-Public Use
  Company Number: US-SUNOVION-2017SUN001777

PATIENT
  Age: 72 Year
  Sex: Male
  Weight: 97.51 kg

DRUGS (2)
  1. LATUDA [Suspect]
     Active Substance: LURASIDONE HYDROCHLORIDE
     Indication: BIPOLAR DISORDER
     Dosage: 60 MG (1/2 TABLET), QD
     Route: 048
     Dates: start: 201704
  2. LITHIUM. [Concomitant]
     Active Substance: LITHIUM
     Dosage: UNK, QD
     Route: 048

REACTIONS (1)
  - Insomnia [Not Recovered/Not Resolved]

NARRATIVE: CASE EVENT DATE: 201704
